FAERS Safety Report 12204784 (Version 1)
Quarter: 2016Q1

REPORT INFORMATION
  Report Type: Spontaneous
  Country: GB (occurrence: GB)
  Receive Date: 20160323
  Receipt Date: 20160323
  Transmission Date: 20160526
  Serious: Yes (Other)
  Sender: FDA-Public Use
  Company Number: GB-WATSON-2016-05971

PATIENT
  Age: 56 Year
  Sex: Male
  Weight: 95.25 kg

DRUGS (1)
  1. CITALOPRAM [Suspect]
     Active Substance: CITALOPRAM HYDROBROMIDE
     Indication: ANXIETY
     Dosage: 10 MG, UNK
     Route: 048

REACTIONS (2)
  - Abnormal loss of weight [Unknown]
  - Nausea [Recovered/Resolved]
